FAERS Safety Report 6906116-X (Version None)
Quarter: 2010Q3

REPORT INFORMATION
  Report Type: 
  Country: None (occurrence: None)
  Receive Date: 20100804
  Receipt Date: 20090604
  Transmission Date: 20110219
  Serious: No
  Sender: FDA-Public Use
  Company Number: US-PFIZER INC-2009171526

PATIENT
  Sex: Female
  Weight: 77.11 kg

DRUGS (4)
  1. SERTRALINE HYDROCHLORIDE [Suspect]
     Indication: DEPRESSION
     Dosage: UNK
     Route: 048
     Dates: start: 20080901
  2. WELLBUTRIN [Concomitant]
     Dosage: UNK
  3. CLARITIN [Concomitant]
     Dates: end: 20080101
  4. ORAL CONTRACEPTIVE NOS [Concomitant]
     Dates: end: 20080901

REACTIONS (3)
  - COUGH [None]
  - INCORRECT DOSE ADMINISTERED [None]
  - THROAT TIGHTNESS [None]
